FAERS Safety Report 12423657 (Version 3)
Quarter: 2016Q4

REPORT INFORMATION
  Report Type: Spontaneous
  Country: US (occurrence: US)
  Receive Date: 20160601
  Receipt Date: 20161125
  Transmission Date: 20170207
  Serious: Yes (Other)
  Sender: FDA-Public Use
  Company Number: US-NOVEN PHARMACEUTICALS, INC.-US2015000715

PATIENT

DRUGS (2)
  1. DAYTRANA [Suspect]
     Active Substance: METHYLPHENIDATE
     Indication: ATTENTION DEFICIT/HYPERACTIVITY DISORDER
     Dosage: 15 MG, UNKNOWN
     Route: 062
     Dates: start: 201406, end: 2015
  2. DAYTRANA [Suspect]
     Active Substance: METHYLPHENIDATE
     Dosage: 15 MG, UNK
     Route: 062
     Dates: start: 20161016

REACTIONS (12)
  - Product quality issue [Unknown]
  - Application site urticaria [Unknown]
  - Hyperhidrosis [Unknown]
  - Application site erythema [Unknown]
  - Body temperature increased [Unknown]
  - Application site irritation [Unknown]
  - Application site vesicles [Unknown]
  - Staphylococcal skin infection [Recovered/Resolved]
  - Application site warmth [Unknown]
  - Application site exfoliation [Unknown]
  - Application site pruritus [Unknown]
  - Application site swelling [Unknown]

NARRATIVE: CASE EVENT DATE: 2015
